FAERS Safety Report 15339499 (Version 1)
Quarter: 2018Q3

REPORT INFORMATION
  Report Type: Spontaneous
  Country: US (occurrence: US)
  Receive Date: 20180827
  Receipt Date: 20180827
  Transmission Date: 20181010
  Serious: No
  Sender: FDA-Public Use
  Company Number: None

PATIENT
  Age: 61 Year
  Sex: Female

DRUGS (1)
  1. HUMIRA [Suspect]
     Active Substance: ADALIMUMAB
     Indication: PSORIATIC ARTHROPATHY
     Route: 058
     Dates: start: 20180221

REACTIONS (6)
  - Upper-airway cough syndrome [None]
  - Pharyngeal erythema [None]
  - Oropharyngeal pain [None]
  - Cough [None]
  - Tongue coated [None]
  - Tongue erythema [None]

NARRATIVE: CASE EVENT DATE: 20180801
